FAERS Safety Report 4503065-1 (Version None)
Quarter: 2004Q4

REPORT INFORMATION
  Report Type: 
  Country: None (occurrence: None)
  Receive Date: 20041116
  Receipt Date: 20041116
  Transmission Date: 20050328
  Serious: Yes (Hospitalization)
  Sender: FDA-Public Use
  Company Number: None

PATIENT
  Age: 19 Year
  Sex: Female
  Weight: 97.977 kg

DRUGS (1)
  1. PROZAC [Suspect]
     Indication: PREMENSTRUAL SYNDROME
     Dosage: 60MG MORNING ORAL
     Route: 048
     Dates: start: 20010505, end: 20010726

REACTIONS (4)
  - AGITATION [None]
  - CONDITION AGGRAVATED [None]
  - DEPRESSION [None]
  - PSYCHOTIC DISORDER [None]
